FAERS Safety Report 16106362 (Version 1)
Quarter: 2019Q1

REPORT INFORMATION
  Report Type: Spontaneous
  Country: US (occurrence: US)
  Receive Date: 20190322
  Receipt Date: 20190322
  Transmission Date: 20190418
  Serious: No
  Sender: FDA-Public Use
  Company Number: US-ARRAY-2019-05143

PATIENT

DRUGS (4)
  1. BRAFTOVI [Suspect]
     Active Substance: ENCORAFENIB
     Indication: CONNECTIVE TISSUE NEOPLASM
     Dosage: 450 MG, QD
     Route: 048
     Dates: start: 20190130
  2. MEKTOVI [Suspect]
     Active Substance: BINIMETINIB
     Indication: CONNECTIVE TISSUE NEOPLASM
     Dosage: 45 MG, BID
     Route: 048
     Dates: start: 20190130
  3. MEKTOVI [Suspect]
     Active Substance: BINIMETINIB
     Indication: MALIGNANT MELANOMA
     Dosage: 45 MG, BID
     Route: 048
     Dates: start: 20190304
  4. BRAFTOVI [Suspect]
     Active Substance: ENCORAFENIB
     Indication: MALIGNANT MELANOMA
     Dosage: 450 MG, QD
     Route: 048
     Dates: start: 20190304

REACTIONS (4)
  - Diarrhoea [Unknown]
  - Gastrooesophageal reflux disease [Recovering/Resolving]
  - Dry skin [Unknown]
  - Dyspepsia [Unknown]

NARRATIVE: CASE EVENT DATE: 20190214
